FAERS Safety Report 16531341 (Version 9)
Quarter: 2020Q1

REPORT INFORMATION
  Report Type: Report from Study
  Country: FR (occurrence: FR)
  Receive Date: 20190704
  Receipt Date: 20200102
  Transmission Date: 20200409
  Serious: Yes (Death, Life-Threatening, Hospitalization, Other)
  Sender: FDA-Public Use
  Company Number: FR-TESARO-2019-TSO01912-FR

PATIENT
  Age: 73 Year
  Sex: Female
  Weight: 46 kg

DRUGS (15)
  1. NIRAPARIB [Suspect]
     Active Substance: NIRAPARIB
     Indication: OVARIAN CANCER
     Dosage: 200 MG, EVERY 1 CYCLE
     Route: 048
     Dates: start: 20190506, end: 20190512
  2. FOSAVANCE [Concomitant]
     Active Substance: ALENDRONATE SODIUM\CHOLECALCIFEROL
     Indication: OSTEOPOROSIS
     Dosage: 70 MG  (0.5 PER WEEK)
     Route: 048
     Dates: start: 20180314
  3. IMETH                              /00113801/ [Concomitant]
     Active Substance: METHOTREXATE
     Indication: POLYARTHRITIS
     Dosage: 10 MG (0.5/WEEK)
     Route: 048
     Dates: start: 20180314
  4. ATENOLOL. [Concomitant]
     Active Substance: ATENOLOL
     Indication: HYPERTENSION
     Dosage: 50 MG, QD
     Route: 048
     Dates: start: 20180901
  5. PREDNISONE. [Concomitant]
     Active Substance: PREDNISONE
     Indication: POLYARTHRITIS
     Dosage: 120 MG, QD
     Route: 042
     Dates: start: 20190513, end: 20190519
  6. CARBOPLATIN. [Concomitant]
     Active Substance: CARBOPLATIN
     Dosage: UNK
     Dates: start: 20170421, end: 20170811
  7. CARBOPLATIN. [Concomitant]
     Active Substance: CARBOPLATIN
     Dosage: 130 MG
     Route: 042
     Dates: start: 20190129, end: 20190403
  8. CORTANCYL [Concomitant]
     Active Substance: PREDNISONE
     Indication: POLYARTHRITIS
     Dosage: 5 MG, QD
     Route: 048
     Dates: start: 20180314
  9. CORTANCYL [Concomitant]
     Active Substance: PREDNISONE
     Dosage: 1 MG, BID
     Route: 048
     Dates: start: 20180314
  10. OMEPRAZOL                          /00661201/ [Concomitant]
     Active Substance: OMEPRAZOLE
     Indication: GASTRIC MUCOSAL LESION
     Dosage: 20 MG, QD
     Route: 048
     Dates: start: 20180901
  11. PREDNISONE. [Concomitant]
     Active Substance: PREDNISONE
     Indication: ASTHENIA
     Dosage: UNK UNK, QD
     Route: 048
     Dates: start: 20180314
  12. CARBOPLATIN. [Concomitant]
     Active Substance: CARBOPLATIN
     Indication: OVARIAN CANCER
     Dosage: UNK
     Dates: start: 20150223, end: 20150720
  13. SITAGLIPTINE [Concomitant]
     Active Substance: SITAGLIPTIN
     Indication: BLOOD CHOLESTEROL
     Dosage: 100 MG, QD
     Route: 048
     Dates: start: 20180901
  14. OMEPRAZOL                          /00661201/ [Concomitant]
     Active Substance: OMEPRAZOLE
     Indication: EPIGASTRIC DISCOMFORT
  15. CARBOPLATIN. [Concomitant]
     Active Substance: CARBOPLATIN
     Indication: CHEMOTHERAPY
     Dosage: 530 MG, UNK
     Dates: start: 20190108, end: 20190327

REACTIONS (4)
  - Sepsis [Fatal]
  - Febrile neutropenia [Fatal]
  - General physical health deterioration [Fatal]
  - Asthenia [Fatal]

NARRATIVE: CASE EVENT DATE: 20190101
